FAERS Safety Report 8470358-5 (Version None)
Quarter: 2012Q2

REPORT INFORMATION
  Report Type: 
  Country: None (occurrence: None)
  Receive Date: 20120627
  Receipt Date: 20120619
  Transmission Date: 20120825
  Serious: Yes (Hospitalization)
  Sender: FDA-Public Use
  Company Number: US-BAYER-2012-043622

PATIENT
  Age: 39 Year
  Sex: Female

DRUGS (8)
  1. FLAGYL [Concomitant]
     Dosage: 500 MG, TID FOR 10 DAYS
     Route: 048
     Dates: start: 20091016
  2. ALBUTEROL [Concomitant]
  3. DROSPIRENONE AND ETHINYL ESTRADIOL [Suspect]
  4. AUGMENTIN '125' [Concomitant]
     Dosage: 875 MG, BID FOR 10 DAYS
     Route: 048
     Dates: start: 20091016
  5. YASMIN [Suspect]
  6. LEXAPRO [Concomitant]
     Dosage: 10 MG, UNK
  7. CIPROFLOXACIN HCL [Concomitant]
     Dosage: 500 MG, BID FOR 10 DAYS
     Route: 048
     Dates: start: 20091016
  8. AUGMENTIN '125' [Concomitant]
     Dosage: 875 MG, 2 [TIMES] DAILY
     Route: 048

REACTIONS (1)
  - PULMONARY EMBOLISM [None]
